FAERS Safety Report 7406286-3 (Version None)
Quarter: 2011Q2

REPORT INFORMATION
  Report Type: 
  Country: None (occurrence: None)
  Receive Date: 20110411
  Receipt Date: 20110401
  Transmission Date: 20111010
  Serious: Yes (Other)
  Sender: FDA-Public Use
  Company Number: US-JNJFOC-20110402998

PATIENT
  Age: 55 Year
  Sex: Male
  Weight: 79.38 kg

DRUGS (5)
  1. PEPCID AC [Suspect]
     Indication: GASTROOESOPHAGEAL REFLUX DISEASE
     Dosage: 5-10MG ONCE DAILY
     Route: 048
  2. PEPCID AC [Suspect]
     Route: 048
  3. ZYRTEC [Suspect]
     Indication: SEASONAL ALLERGY
  4. ALCOHOL [Suspect]
     Indication: PRODUCT USED FOR UNKNOWN INDICATION
  5. ZYRTEC [Suspect]

REACTIONS (2)
  - RESTLESS LEGS SYNDROME [None]
  - INTENTIONAL DRUG MISUSE [None]
